FAERS Safety Report 4677911-5 (Version None)
Quarter: 2005Q2

REPORT INFORMATION
  Report Type: 
  Country: None (occurrence: None)
  Receive Date: 20050527
  Receipt Date: 20050527
  Transmission Date: 20051028
  Serious: Yes (Other)
  Sender: FDA-Public Use
  Company Number: None

PATIENT
  Age: 79 Year
  Sex: Female
  Weight: 71.6683 kg

DRUGS (1)
  1. ZETIA [Suspect]
     Indication: HYPERBILIRUBINAEMIA
     Dosage: 10 MG ONE PO QD
     Route: 048
     Dates: start: 20050509, end: 20050511

REACTIONS (1)
  - MUSCLE SPASMS [None]
